FAERS Safety Report 23572717 (Version 1)
Quarter: 2024Q1

REPORT INFORMATION
  Report Type: Spontaneous
  Country: US (occurrence: US)
  Receive Date: 20240227
  Receipt Date: 20240227
  Transmission Date: 20240410
  Serious: No
  Sender: FDA-Public Use
  Company Number: US-AVADEL CNS PHARMACEUTICALS, LLC-2024AVA00033

PATIENT

DRUGS (2)
  1. LUMRYZ [Suspect]
     Active Substance: SODIUM OXYBATE
     Dosage: UNK
     Dates: start: 2023
  2. SUNOSI [Concomitant]
     Active Substance: SOLRIAMFETOL
     Dosage: UNK, 2X/DAY

REACTIONS (5)
  - Gastrointestinal disorder [Recovered/Resolved]
  - Stress [Unknown]
  - Decreased appetite [Unknown]
  - Anxiety [Unknown]
  - Unevaluable event [Recovering/Resolving]

NARRATIVE: CASE EVENT DATE: 20230101
